FAERS Safety Report 22088185 (Version 2)
Quarter: 2023Q2

REPORT INFORMATION
  Report Type: Report from Study
  Country: US (occurrence: US)
  Receive Date: 20230313
  Receipt Date: 20230403
  Transmission Date: 20230721
  Serious: Yes (Hospitalization, Other)
  Sender: FDA-Public Use
  Company Number: US-TAKEDA-2022TUS039534

PATIENT
  Sex: Female

DRUGS (2)
  1. MARIBAVIR [Suspect]
     Active Substance: MARIBAVIR
     Indication: Cytomegalovirus infection
     Dosage: 400 MILLIGRAM, BID
     Route: 048
     Dates: start: 20220521
  2. MARIBAVIR [Suspect]
     Active Substance: MARIBAVIR
     Dosage: UNK
     Route: 065
     Dates: end: 20230215

REACTIONS (3)
  - Limb discomfort [Unknown]
  - Raymond-Cestan syndrome [Unknown]
  - Dysgeusia [Unknown]
